FAERS Safety Report 6188530-6 (Version None)
Quarter: 2009Q2

REPORT INFORMATION
  Report Type: 
  Country: None (occurrence: None)
  Receive Date: 20090513
  Receipt Date: 20090430
  Transmission Date: 20091009
  Serious: Yes (Other)
  Sender: FDA-Public Use
  Company Number: US-PFIZER INC-2009187947

PATIENT
  Sex: Female
  Weight: 43 kg

DRUGS (4)
  1. SERTRALINE HCL [Suspect]
     Indication: GENERALISED ANXIETY DISORDER
     Dosage: 100 MG, 1X/DAY
     Dates: start: 20040201, end: 20090314
  2. SERTRALINE HCL [Suspect]
     Indication: PANIC DISORDER
  3. FOSAMAX [Concomitant]
     Dosage: UNK
  4. SYNTHROID [Concomitant]
     Dosage: UNK

REACTIONS (7)
  - APHONIA [None]
  - BURNING SENSATION [None]
  - CIRCUMSTANCE OR INFORMATION CAPABLE OF LEADING TO MEDICATION ERROR [None]
  - FOREIGN BODY TRAUMA [None]
  - PAIN [None]
  - SPEECH DISORDER [None]
  - THROAT IRRITATION [None]
